FAERS Safety Report 10143270 (Version 1)
Quarter: 2014Q2

REPORT INFORMATION
  Report Type: Spontaneous
  Country: US (occurrence: US)
  Receive Date: 20140430
  Receipt Date: 20140430
  Transmission Date: 20141212
  Serious: Yes (Hospitalization)
  Sender: FDA-Public Use
  Company Number: US-ASTRAZENECA-2014SE28006

PATIENT
  Age: 6458 Day
  Sex: Male
  Weight: 56.7 kg

DRUGS (4)
  1. BUDESONIDE [Suspect]
     Indication: CROHN^S DISEASE
     Route: 048
     Dates: start: 20140322
  2. BUDESONIDE [Suspect]
     Indication: CROHN^S DISEASE
     Dosage: DIVIDED TO 6 MG AM AND THE REMAINING 3 MG AFTER SCHOOL
     Route: 048
     Dates: end: 20140420
  3. PREDNISONE [Suspect]
     Route: 065
  4. MESALAMINE APRISO [Concomitant]
     Indication: CROHN^S DISEASE
     Dosage: 4 TABLETS OF 0.375G DAILY
     Route: 048
     Dates: start: 20140331

REACTIONS (8)
  - Dyskinesia [Not Recovered/Not Resolved]
  - Paraesthesia [Not Recovered/Not Resolved]
  - Arthralgia [Not Recovered/Not Resolved]
  - Gait disturbance [Unknown]
  - Crying [Recovered/Resolved]
  - Aggression [Unknown]
  - Off label use [Recovered/Resolved]
  - Off label use [Recovered/Resolved]
